FAERS Safety Report 23760907 (Version 2)
Quarter: 2024Q2

REPORT INFORMATION
  Report Type: Spontaneous
  Country: RO (occurrence: None)
  Receive Date: 20240419
  Receipt Date: 20240530
  Transmission Date: 20240716
  Serious: Yes (Death, Life-Threatening)
  Sender: FDA-Public Use
  Company Number: 2024A091352

PATIENT
  Sex: Female

DRUGS (1)
  1. ONDEXXYA [Suspect]
     Active Substance: ANDEXANET ALFA
     Route: 040

REACTIONS (3)
  - Cardiac disorder [Fatal]
  - Pneumonia aspiration [Unknown]
  - Cardio-respiratory arrest [Unknown]
